FAERS Safety Report 7721502-6 (Version None)
Quarter: 2011Q3

REPORT INFORMATION
  Report Type: 
  Country: None (occurrence: None)
  Receive Date: 20110825
  Receipt Date: 20110809
  Transmission Date: 20111222
  Serious: Yes (Other)
  Sender: FDA-Public Use
  Company Number: 2011MA011566

PATIENT

DRUGS (1)
  1. FEVERALL [Suspect]

REACTIONS (3)
  - TUBULOINTERSTITIAL NEPHRITIS [None]
  - TOXICITY TO VARIOUS AGENTS [None]
  - HAEMODIALYSIS [None]
